FAERS Safety Report 9453164 (Version 1)
Quarter: 2013Q3

REPORT INFORMATION
  Report Type: Spontaneous
  Country: US (occurrence: None)
  Receive Date: 20130805
  Receipt Date: 20130805
  Transmission Date: 20140515
  Serious: Yes (Other)
  Sender: FDA-Public Use
  Company Number: ACO_35701_2013

PATIENT
  Age: 38 Year
  Sex: Female

DRUGS (1)
  1. AMPYRA [Suspect]
     Dosage: 2 TABS/TWICE A DAY
     Dates: start: 201006

REACTIONS (4)
  - Abortion spontaneous [None]
  - Maternal exposure during pregnancy [None]
  - Fall [None]
  - Contusion [None]
